FAERS Safety Report 4266022-9 (Version None)
Quarter: 2004Q1

REPORT INFORMATION
  Report Type: 
  Country: None (occurrence: None)
  Receive Date: 20040106
  Receipt Date: 20031219
  Transmission Date: 20041129
  Serious: Yes (Death)
  Sender: FDA-Public Use
  Company Number: HCDA20030010

PATIENT
  Age: 41 Year
  Sex: Female

DRUGS (9)
  1. HYDROCODONE BITARTRATE AND ACETAMINOPHEN [Suspect]
     Dosage: 2-4 TABS PO
     Route: 048
     Dates: start: 20020101, end: 20020101
  2. FENTANYL [Suspect]
     Dosage: PO
     Route: 048
     Dates: start: 20020101, end: 20020101
  3. CARISOPRODOL [Suspect]
     Dosage: 2-4 TABS PO
     Route: 048
     Dates: start: 20020101, end: 20020101
  4. CLONAZEPAM [Suspect]
     Dosage: 2 TABS PO
     Route: 048
     Dates: start: 20020101, end: 20020101
  5. GABAPENTIN [Suspect]
     Dosage: PO
     Route: 048
     Dates: start: 20020101, end: 20020101
  6. CYCLOBENZAPRINE HCL [Suspect]
     Dosage: PO
     Route: 048
     Dates: start: 20020101, end: 20020101
  7. TOLTERODINE [Suspect]
     Dosage: PO
     Route: 048
     Dates: start: 20020101, end: 20020101
  8. BUSPIRONE HCL [Suspect]
     Dosage: PO
     Route: 048
     Dates: start: 20020101, end: 20020101
  9. DOXYCYCLINE [Suspect]
     Dosage: PO
     Route: 048
     Dates: start: 20020101, end: 20020101

REACTIONS (21)
  - BLOOD GLUCOSE INCREASED [None]
  - BLOOD MAGNESIUM INCREASED [None]
  - BLOOD SODIUM INCREASED [None]
  - BODY TEMPERATURE DECREASED [None]
  - BRAIN DEATH [None]
  - CARDIAC FAILURE [None]
  - CARDIO-RESPIRATORY ARREST [None]
  - COMA [None]
  - DRUG INEFFECTIVE [None]
  - ELECTROCARDIOGRAM ST SEGMENT ELEVATION [None]
  - ELECTROENCEPHALOGRAM ABNORMAL [None]
  - HAEMOGLOBIN DECREASED [None]
  - HEART RATE INCREASED [None]
  - HEPATIC FAILURE [None]
  - LIVEDO RETICULARIS [None]
  - MEDICATION ERROR [None]
  - MULTI-ORGAN FAILURE [None]
  - MULTIPLE DRUG OVERDOSE [None]
  - RECTAL HAEMORRHAGE [None]
  - RENAL FAILURE [None]
  - SUICIDE ATTEMPT [None]
